FAERS Safety Report 9179912 (Version 2)
Quarter: 2013Q2

REPORT INFORMATION
  Report Type: Other
  Country: GB (occurrence: GB)
  Receive Date: 20130321
  Receipt Date: 20130429
  Transmission Date: 20140414
  Serious: Yes (Other)
  Sender: FDA-Public Use
  Company Number: GB-WATSON-2013-04256

PATIENT
  Age: 67 Year
  Sex: Male
  Weight: 99 kg

DRUGS (4)
  1. SIMVASTATIN (UNKNOWN) [Suspect]
     Indication: BLOOD CHOLESTEROL INCREASED
     Dosage: 20 MG, UNKNOWN
     Route: 048
     Dates: end: 20121207
  2. AMLODIPINE (UNKNOWN) [Suspect]
     Indication: BLOOD PRESSURE
     Dosage: 5 MG, UNKNOWN
     Route: 048
     Dates: start: 20120101
  3. NASONEX [Suspect]
     Indication: PRODUCT USED FOR UNKNOWN INDICATION
     Dosage: 50 MCG, UNKNOWN
     Route: 065
     Dates: start: 201301
  4. RAMIPRIL [Concomitant]
     Indication: PRODUCT USED FOR UNKNOWN INDICATION
     Dosage: UNKNOWN
     Route: 065
     Dates: end: 20121120

REACTIONS (5)
  - Myalgia [Recovered/Resolved with Sequelae]
  - Chest pain [Recovered/Resolved with Sequelae]
  - Flank pain [Unknown]
  - Cough [Unknown]
  - Drug interaction [Unknown]
